FAERS Safety Report 11476070 (Version 1)
Quarter: 2015Q3

REPORT INFORMATION
  Report Type: Spontaneous
  Country: US (occurrence: US)
  Receive Date: 20150909
  Receipt Date: 20150909
  Transmission Date: 20151125
  Serious: No
  Sender: FDA-Public Use
  Company Number: US-JAZZ-2014-US-008849

PATIENT
  Sex: Female
  Weight: 101.1 kg

DRUGS (6)
  1. XYREM [Suspect]
     Active Substance: SODIUM OXYBATE
     Dosage: DOSE ADJUSTMENTS
     Route: 048
  2. XYREM [Suspect]
     Active Substance: SODIUM OXYBATE
     Dosage: 4.5 G, BID
     Route: 048
     Dates: start: 201310
  3. SOMA [Concomitant]
     Active Substance: CARISOPRODOL
     Indication: MUSCLE RELAXANT THERAPY
     Dosage: UNK
     Route: 048
  4. OXYCODONE [Concomitant]
     Active Substance: OXYCODONE
     Indication: CYSTITIS
     Dosage: UNK
     Route: 048
  5. REQUIP [Concomitant]
     Active Substance: ROPINIROLE HYDROCHLORIDE
     Indication: RESTLESS LEGS SYNDROME
     Dosage: UNK
     Route: 048
  6. XYREM [Suspect]
     Active Substance: SODIUM OXYBATE
     Indication: NARCOLEPSY
     Dosage: 2.25 G, BID
     Route: 048
     Dates: start: 201308, end: 2013

REACTIONS (2)
  - Middle insomnia [Not Recovered/Not Resolved]
  - Road traffic accident [Recovered/Resolved]

NARRATIVE: CASE EVENT DATE: 2013
